FAERS Safety Report 23407495 (Version 1)
Quarter: 2024Q1

REPORT INFORMATION
  Report Type: Spontaneous
  Country: CA (occurrence: CA)
  Receive Date: 20240117
  Receipt Date: 20240117
  Transmission Date: 20240410
  Serious: Yes (Other)
  Sender: FDA-Public Use
  Company Number: CA-DRL-USA-SPO/CAN/24/0000546

PATIENT
  Age: 53 Year
  Sex: Female

DRUGS (8)
  1. ZOLEDRONIC ACID [Suspect]
     Active Substance: ZOLEDRONIC ACID
     Indication: Small cell carcinoma
  2. ZOLEDRONIC ACID [Suspect]
     Active Substance: ZOLEDRONIC ACID
     Indication: Breast cancer
  3. CAPECITABINE [Suspect]
     Active Substance: CAPECITABINE
     Indication: Small cell carcinoma
     Route: 048
  4. CAPECITABINE [Suspect]
     Active Substance: CAPECITABINE
     Indication: Breast cancer
  5. IBRANCE [Suspect]
     Active Substance: PALBOCICLIB
     Indication: Small cell carcinoma
  6. IBRANCE [Suspect]
     Active Substance: PALBOCICLIB
     Indication: Breast cancer
  7. LETROZOLE [Suspect]
     Active Substance: LETROZOLE
     Indication: Small cell carcinoma
  8. LETROZOLE [Suspect]
     Active Substance: LETROZOLE
     Indication: Breast cancer

REACTIONS (1)
  - Drug ineffective [Unknown]
